FAERS Safety Report 15150380 (Version 1)
Quarter: 2018Q3

REPORT INFORMATION
  Report Type: Spontaneous
  Country: FR (occurrence: FR)
  Receive Date: 20180716
  Receipt Date: 20180716
  Transmission Date: 20181010
  Serious: Yes (Other)
  Sender: FDA-Public Use
  Company Number: FR-CELLTRION INC.-2018FR021388

PATIENT

DRUGS (6)
  1. MESALAZINE [Concomitant]
     Active Substance: MESALAMINE
     Dosage: UNK
  2. INFLECTRA [Suspect]
     Active Substance: INFLIXIMAB-DYYB
     Indication: SPINAL OSTEOARTHRITIS
     Dosage: UNK (OPTIMIZED WITH INFUSION EVERY 7 WEEKS)
  3. BUDESONIDE. [Concomitant]
     Active Substance: BUDESONIDE
  4. ADALIMUMAB [Concomitant]
     Active Substance: ADALIMUMAB
  5. INFLECTRA [Suspect]
     Active Substance: INFLIXIMAB-DYYB
     Indication: CROHN^S DISEASE
     Dosage: 5 MG/KG, EVERY 8 WEEKS
     Dates: start: 20141205
  6. SULFASALAZINE. [Concomitant]
     Active Substance: SULFASALAZINE
     Dosage: UNK
     Dates: start: 20150519

REACTIONS (2)
  - Diarrhoea haemorrhagic [Unknown]
  - Rash [Unknown]
